FAERS Safety Report 9116846 (Version 1)
Quarter: 2013Q1

REPORT INFORMATION
  Report Type: Spontaneous
  Country: AU (occurrence: AU)
  Receive Date: 20130225
  Receipt Date: 20130225
  Transmission Date: 20140127
  Serious: Yes (Disabling)
  Sender: FDA-Public Use
  Company Number: PHHY2013AU013972

PATIENT
  Sex: Male

DRUGS (4)
  1. GLIVEC [Suspect]
     Indication: CHRONIC MYELOID LEUKAEMIA
     Dosage: 400 MG, UNK
     Dates: start: 201005
  2. NOVORAPID [Concomitant]
     Indication: TYPE 1 DIABETES MELLITUS
     Dosage: UNK UKN, UNK
     Route: 058
  3. LANTUS [Concomitant]
     Dosage: UNK UKN, UNK
     Route: 058
     Dates: start: 1995
  4. LIPITOR [Concomitant]
     Dosage: 20 MG, UNK
     Route: 048
     Dates: start: 20121116

REACTIONS (1)
  - Dysphonia [Unknown]
